FAERS Safety Report 10748449 (Version 2)
Quarter: 2015Q2

REPORT INFORMATION
  Report Type: Spontaneous
  Country: US (occurrence: None)
  Receive Date: 20150120
  Receipt Date: 20150420
  Transmission Date: 20150821
  Serious: Yes (Other)
  Sender: FDA-Public Use
  Company Number: AEGR000801

PATIENT
  Age: 56 Year
  Sex: Male
  Weight: 80.7 kg

DRUGS (4)
  1. ASPIRIN (ACETYLSALICYLIC ACID) [Concomitant]
     Active Substance: ASPIRIN
  2. DEXILANT [Concomitant]
     Active Substance: DEXLANSOPRAZOLE
  3. JUXTAPID [Suspect]
     Active Substance: LOMITAPIDE MESYLATE
     Indication: TYPE IIA HYPERLIPIDAEMIA
     Route: 048
     Dates: start: 201409, end: 20150119
  4. IBUPROFEN. [Concomitant]
     Active Substance: IBUPROFEN

REACTIONS (6)
  - Dizziness [None]
  - Pain [None]
  - Diarrhoea [None]
  - Chest pain [None]
  - Therapy cessation [None]
  - Hypoaesthesia [None]

NARRATIVE: CASE EVENT DATE: 2014
